FAERS Safety Report 19089941 (Version 1)
Quarter: 2021Q2

REPORT INFORMATION
  Report Type: Spontaneous
  Country: PT (occurrence: PT)
  Receive Date: 20210404
  Receipt Date: 20210404
  Transmission Date: 20210717
  Serious: Yes (Hospitalization, Other)
  Sender: FDA-Public Use
  Company Number: NVSC2021PT066841

PATIENT
  Age: 33 Year
  Sex: Female

DRUGS (3)
  1. METAMIZOLE [Concomitant]
     Active Substance: METAMIZOLE
     Indication: MYALGIA
     Dosage: 1725 MG, QD
     Route: 048
  2. IBUPROFEN. [Suspect]
     Active Substance: IBUPROFEN
     Indication: MYALGIA
     Dosage: 600 MG
     Route: 048
  3. PARACETAMOL [Concomitant]
     Active Substance: ACETAMINOPHEN
     Indication: MYALGIA
     Dosage: UNK
     Route: 065

REACTIONS (5)
  - Thrombotic microangiopathy [Unknown]
  - Myalgia [Unknown]
  - Renal tubular necrosis [Recovered/Resolved]
  - Pancytopenia [Recovered/Resolved]
  - Myelosuppression [Recovered/Resolved]

NARRATIVE: CASE EVENT DATE: 20210202
